FAERS Safety Report 16866862 (Version 4)
Quarter: 2019Q4

REPORT INFORMATION
  Report Type: Report from Study
  Country: None (occurrence: SE)
  Receive Date: 20190930
  Receipt Date: 20191112
  Transmission Date: 20200122
  Serious: Yes (Hospitalization)
  Sender: FDA-Public Use
  Company Number: SE-ABBVIE-19K-150-2943690-00

PATIENT
  Age: 64 Year
  Sex: Male
  Weight: 84 kg

DRUGS (3)
  1. DUODOPA [Suspect]
     Active Substance: CARBIDOPA\LEVODOPA
     Dosage: CONTINUOUS DOSE DECREASED TO 4.4 ML/H
     Route: 050
     Dates: start: 20191021
  2. DUODOPA [Suspect]
     Active Substance: CARBIDOPA\LEVODOPA
     Dosage: MORNING DOSE: 3.2 ML?CONTINUOUS DOSE: 4.5 ML/H?EXTRA DOSE: 2 ML
     Route: 050
     Dates: start: 20150923
  3. DUODOPA [Suspect]
     Active Substance: CARBIDOPA\LEVODOPA
     Indication: PARKINSON^S DISEASE
     Route: 050
     Dates: start: 20150901

REACTIONS (16)
  - Infection [Recovered/Resolved]
  - Joint injury [Not Recovered/Not Resolved]
  - Hypokinesia [Not Recovered/Not Resolved]
  - Arthralgia [Not Recovered/Not Resolved]
  - Hallucination [Not Recovered/Not Resolved]
  - Pyrexia [Recovered/Resolved]
  - Hyperkinesia [Recovering/Resolving]
  - Therapeutic product effect delayed [Not Recovered/Not Resolved]
  - Urinary incontinence [Not Recovered/Not Resolved]
  - Fall [Recovering/Resolving]
  - Cognitive disorder [Not Recovered/Not Resolved]
  - Nerve injury [Unknown]
  - Gait disturbance [Recovering/Resolving]
  - Malaise [Unknown]
  - Musculoskeletal stiffness [Recovering/Resolving]
  - Excessive granulation tissue [Not Recovered/Not Resolved]

NARRATIVE: CASE EVENT DATE: 20190927
